FAERS Safety Report 9056299 (Version 1)
Quarter: 2013Q1

REPORT INFORMATION
  Report Type: Report from Study
  Country: NL (occurrence: NL)
  Receive Date: 20130204
  Receipt Date: 20130204
  Transmission Date: 20140127
  Serious: Yes (Hospitalization)
  Sender: FDA-Public Use
  Company Number: NL-US-EMD SERONO, INC.-7191324

PATIENT
  Sex: Female

DRUGS (3)
  1. REBIF [Suspect]
     Indication: MULTIPLE SCLEROSIS
     Route: 058
     Dates: start: 200709
  2. ACETALAMIDE (ACETAZOLAMIDE) [Concomitant]
     Indication: HEADACHE
     Route: 048
     Dates: start: 201105
  3. PARACETAMOL [Concomitant]
     Indication: INFLUENZA LIKE ILLNESS

REACTIONS (2)
  - Influenza like illness [Not Recovered/Not Resolved]
  - Injection site erythema [Not Recovered/Not Resolved]
